FAERS Safety Report 9506145 (Version 2)
Quarter: 2014Q1

REPORT INFORMATION
  Report Type: Spontaneous
  Country: US (occurrence: None)
  Receive Date: 20130305
  Receipt Date: 20140306
  Transmission Date: 20141002
  Serious: Yes (Other)
  Sender: FDA-Public Use
  Company Number: 163-21880-11061728

PATIENT
  Age: 86 Year
  Sex: Female

DRUGS (3)
  1. REVLIMID (LENALIDOMIDE) (CAPSULES) [Suspect]
     Indication: MYELODYSPLASTIC SYNDROME
     Route: 048
     Dates: start: 20110322
  2. PREDNISONE (PREDNISONE) [Concomitant]
  3. ASPIRIN (ACETYLSALICYLIC ACID) [Concomitant]

REACTIONS (4)
  - Renal failure [None]
  - Full blood count decreased [None]
  - Creatinine renal clearance abnormal [None]
  - White blood cell count decreased [None]
